FAERS Safety Report 5934126-8 (Version None)
Quarter: 2008Q4

REPORT INFORMATION
  Report Type: 
  Country: None (occurrence: None)
  Receive Date: 20081029
  Receipt Date: 20081024
  Transmission Date: 20090506
  Serious: Yes (Hospitalization)
  Sender: FDA-Public Use
  Company Number: A0718443A

PATIENT
  Age: 56 Year
  Sex: Female

DRUGS (4)
  1. AVANDIA [Suspect]
     Route: 065
     Dates: start: 19990901, end: 20070125
  2. AVANDAMET [Suspect]
     Dates: start: 19990901, end: 20070125
  3. AVANDARYL [Suspect]
     Dates: start: 19990901, end: 20070125
  4. METFORMIN HYDROCHLORIDE [Concomitant]
     Dates: start: 20030210, end: 20071101

REACTIONS (2)
  - CORONARY ARTERY DISEASE [None]
  - MYOCARDIAL INFARCTION [None]
